FAERS Safety Report 16699034 (Version 1)
Quarter: 2019Q3

REPORT INFORMATION
  Report Type: Spontaneous
  Country: US (occurrence: US)
  Receive Date: 20190813
  Receipt Date: 20190813
  Transmission Date: 20191004
  Serious: No
  Sender: FDA-Public Use
  Company Number: US-PERRIGO-19US002015

PATIENT
  Age: 74 Year
  Sex: Male
  Weight: 102.04 kg

DRUGS (4)
  1. DILTIAZEM. [Concomitant]
     Active Substance: DILTIAZEM
     Indication: GASTROOESOPHAGEAL REFLUX DISEASE
     Dosage: UNK
     Route: 065
  2. IRON [Concomitant]
     Active Substance: IRON
     Indication: ANAEMIA
     Dosage: UNK
     Route: 065
     Dates: start: 2018
  3. RAMIPRIL. [Concomitant]
     Active Substance: RAMIPRIL
     Indication: BLOOD PRESSURE ABNORMAL
     Dosage: UNK
     Route: 065
  4. LORATADINE. [Suspect]
     Active Substance: LORATADINE
     Indication: RHINORRHOEA
     Dosage: 10 MG, QD
     Route: 048
     Dates: start: 20190210, end: 20190212

REACTIONS (1)
  - Drug ineffective [Unknown]

NARRATIVE: CASE EVENT DATE: 20190210
